FAERS Safety Report 6966061-0 (Version None)
Quarter: 2010Q3

REPORT INFORMATION
  Report Type: 
  Country: None (occurrence: None)
  Receive Date: 20100903
  Receipt Date: 20100706
  Transmission Date: 20110219
  Serious: No
  Sender: FDA-Public Use
  Company Number: A0868657A

PATIENT
  Age: 46 Year
  Sex: Female

DRUGS (5)
  1. LAMICTAL [Suspect]
     Indication: PRODUCT USED FOR UNKNOWN INDICATION
     Dosage: 50MG UNKNOWN
     Route: 048
     Dates: start: 20100605, end: 20100702
  2. DEPAKOTE [Suspect]
     Indication: DRUG INTERACTION
     Route: 065
  3. ANTIBIOTIC EYE DROPS [Suspect]
  4. SULFA [Concomitant]
  5. CIPROFLOXACIN HYDROCHLORIDE [Concomitant]

REACTIONS (11)
  - DRUG INTERACTION [None]
  - EYE INFECTION [None]
  - HYPERSENSITIVITY [None]
  - LYMPHADENOPATHY [None]
  - OEDEMA PERIPHERAL [None]
  - PHARYNGEAL OEDEMA [None]
  - PRURITUS GENERALISED [None]
  - RASH [None]
  - SWELLING [None]
  - SWOLLEN TONGUE [None]
  - URTICARIA [None]
